FAERS Safety Report 14163320 (Version 1)
Quarter: 2017Q4

REPORT INFORMATION
  Report Type: Spontaneous
  Country: US (occurrence: US)
  Receive Date: 20171106
  Receipt Date: 20171106
  Transmission Date: 20180321
  Serious: No
  Sender: FDA-Public Use
  Company Number: US-PFIZER INC-2017471532

PATIENT
  Age: 82 Year
  Sex: Female

DRUGS (7)
  1. SERTRALINE [Concomitant]
     Active Substance: SERTRALINE HYDROCHLORIDE
     Dosage: 25 MG, UNK
  2. LISINOPRIL. [Concomitant]
     Active Substance: LISINOPRIL
     Dosage: 10 MG, UNK
  3. PROPRANOLOL [Concomitant]
     Active Substance: PROPRANOLOL HYDROCHLORIDE
     Dosage: 20 MG, UNK
  4. IBRANCE [Suspect]
     Active Substance: PALBOCICLIB
     Indication: BREAST CANCER STAGE IV
     Dosage: 100 MG, CYCLIC [1 TABLET PO QD FOR 21 DAY/7 DAYS OFF]
     Route: 048
  5. IBRANCE [Suspect]
     Active Substance: PALBOCICLIB
     Dosage: 125 MG, UNK
  6. FEMARA [Concomitant]
     Active Substance: LETROZOLE
     Dosage: 2.5 MG, UNK
  7. LEVOTHYROXINE. [Concomitant]
     Active Substance: LEVOTHYROXINE
     Dosage: 75 UG, UNK

REACTIONS (10)
  - Neutrophil count decreased [Unknown]
  - Blood urea increased [Unknown]
  - White blood cell count decreased [Unknown]
  - Haematocrit increased [Unknown]
  - Mean cell haemoglobin concentration decreased [Unknown]
  - Glomerular filtration rate decreased [Unknown]
  - Monocyte count decreased [Unknown]
  - Tumour marker increased [Unknown]
  - Lymphocyte percentage increased [Unknown]
  - Fatigue [Unknown]

NARRATIVE: CASE EVENT DATE: 20171017
